FAERS Safety Report 22609394 (Version 2)
Quarter: 2025Q4

REPORT INFORMATION
  Report Type: Spontaneous
  Country: VN (occurrence: VN)
  Receive Date: 20230616
  Receipt Date: 20251118
  Transmission Date: 20260118
  Serious: Yes (Other)
  Sender: ROCHE
  Company Number: VN-ROCHE-3369259

PATIENT
  Age: 55 Year
  Sex: Male

DRUGS (15)
  1. MABTHERA [Suspect]
     Active Substance: RITUXIMAB
     Indication: Diffuse large B-cell lymphoma
     Dosage: TREATMENT WITH RCHOP
     Route: 058
     Dates: start: 202104
  2. MABTHERA [Suspect]
     Active Substance: RITUXIMAB
     Dosage: R-DAEOPCH, ALSO SUBSEQUENT DOSE WAS ADMINISTERED ON R-ICE, R-HYPER-CVAD,
     Route: 058
     Dates: start: 202202
  3. MABTHERA [Suspect]
     Active Substance: RITUXIMAB
     Dosage: BENDAMUSTINE-RITUXIMAB XX1 CYCLE -R-GEMOX X 3 CYCLES
     Route: 058
     Dates: start: 202303
  4. CYCLOPHOSPHAMIDE [Suspect]
     Active Substance: CYCLOPHOSPHAMIDE
     Indication: Diffuse large B-cell lymphoma
     Dosage: R-CHOP, ALSO SUBSEQUENT DOSE OF CYCLOPHOSPHAMIDE WAS ADMINISTERED ON /FEB/2022 (R-DAEOPCH, R-HYPER-C
     Route: 065
     Dates: start: 202104
  5. DOXORUBICIN HYDROCHLORIDE [Suspect]
     Active Substance: DOXORUBICIN HYDROCHLORIDE
     Indication: Diffuse large B-cell lymphoma
     Dosage: R-CHOP, ALSO SUBSEQUENT DOSE OF DOXORUBICIN WAS ADMINISTERED ON /FEB/2022 (R-DAEOPCH, R-HYPER-CVAD)
     Route: 065
     Dates: start: 202104
  6. VINCRISTINE SULFATE [Suspect]
     Active Substance: VINCRISTINE SULFATE
     Indication: Diffuse large B-cell lymphoma
     Dosage: R-CHOP, ALSO SUBSEQUENT DOSE OF VINCRISTINE WAS ADMINISTERED ON /FEB/2022 (R-DAEOPCH, R-HYPER-CVAD)
     Route: 065
     Dates: start: 202104
  7. PREDNISONE [Suspect]
     Active Substance: PREDNISONE
     Indication: Diffuse large B-cell lymphoma
     Dosage: R-CHOP, ALSO SUBSEQUENT DOSE OF PREDNISONE WAS ADMINISTERED ON /FEB/2022 (R-DAEOPCH)
     Route: 065
     Dates: start: 202104
  8. ETOPOSIDE [Suspect]
     Active Substance: ETOPOSIDE
     Indication: Diffuse large B-cell lymphoma
     Dosage: R-DAEOPCH, ALSO SUBSEQUENT DOSE OF ETOPOSIDE WAS ADMINISTERED ON /FEB/2022 (R-ICE)
     Route: 065
  9. IFOSFAMIDE [Suspect]
     Active Substance: IFOSFAMIDE
     Indication: Diffuse large B-cell lymphoma
     Dosage: R-ICE
     Route: 065
  10. CARBOPLATIN [Suspect]
     Active Substance: CARBOPLATIN
     Indication: Diffuse large B-cell lymphoma
     Dosage: R-ICE
     Route: 065
  11. LENALIDOMIDE [Suspect]
     Active Substance: LENALIDOMIDE
     Indication: Diffuse large B-cell lymphoma
     Dosage: LENALIDOMIDE X 2 CYCLES
     Route: 065
  12. DEXAMETHASONE [Suspect]
     Active Substance: DEXAMETHASONE
     Indication: Diffuse large B-cell lymphoma
     Dosage: HYPERCVAD COURSE A X 2 CYCLES
     Route: 065
  13. BENDAMUSTINE [Suspect]
     Active Substance: BENDAMUSTINE
     Indication: Diffuse large B-cell lymphoma
     Dosage: BENDAMUSTINE-RITUXIMAB X 1
     Route: 065
  14. GEMCITABINE [Suspect]
     Active Substance: GEMCITABINE
     Indication: Diffuse large B-cell lymphoma
     Dosage: R-GEMOX X 3 CYCLES
     Route: 065
  15. OXALIPLATIN [Suspect]
     Active Substance: OXALIPLATIN
     Indication: Diffuse large B-cell lymphoma
     Dosage: R- GEMOX X 3 CYCLES
     Route: 065

REACTIONS (8)
  - Disease progression [Unknown]
  - Leukopenia [Unknown]
  - Thrombocytopenia [Unknown]
  - Ulcer [Unknown]
  - Pain [Unknown]
  - Swelling [Unknown]
  - Necrosis [Unknown]
  - Skin injury [Unknown]

NARRATIVE: CASE EVENT DATE: 20210401
